FAERS Safety Report 9485823 (Version 2)
Quarter: 2013Q4

REPORT INFORMATION
  Report Type: Report from Study
  Country: CA (occurrence: CA)
  Receive Date: 20130829
  Receipt Date: 20131110
  Transmission Date: 20140711
  Serious: No
  Sender: FDA-Public Use
  Company Number: PHHY2013CA093611

PATIENT
  Age: 77 Year
  Sex: Male

DRUGS (2)
  1. EXELON PATCH [Suspect]
     Indication: DEMENTIA ALZHEIMER^S TYPE
     Dosage: 4.6 MG, DAILY
     Route: 062
  2. EXELON PATCH [Suspect]
     Dosage: 9.5 MG, DAILY
     Route: 062
     Dates: start: 20130626

REACTIONS (6)
  - Periorbital haematoma [Unknown]
  - Lip swelling [Unknown]
  - Hypersensitivity [Unknown]
  - Fall [Unknown]
  - Application site erythema [Unknown]
  - Application site pruritus [Unknown]
